FAERS Safety Report 19976351 (Version 1)
Quarter: 2021Q4

REPORT INFORMATION
  Report Type: Spontaneous
  Country: US (occurrence: US)
  Receive Date: 20211020
  Receipt Date: 20211020
  Transmission Date: 20220303
  Serious: No
  Sender: FDA-Public Use
  Company Number: US-ALLERGAN-2036578US

PATIENT
  Age: 44 Year
  Sex: Female
  Weight: 63.49 kg

DRUGS (6)
  1. ZENPEP [Suspect]
     Active Substance: PANCRELIPASE AMYLASE\PANCRELIPASE LIPASE\PANCRELIPASE PROTEASE
     Dosage: 40,000 UNITS/126,000 UNITS/168,000 UNITS 6 CAPSULES WITH EACH MEAL, TOTAL OF 18 A DAY AND TOOK 3-4 W
     Route: 048
  2. ZENPEP [Suspect]
     Active Substance: PANCRELIPASE AMYLASE\PANCRELIPASE LIPASE\PANCRELIPASE PROTEASE
     Dosage: 40,000 UNITS/126,000 UNITS/168,000 UNITS 6 CAPSULES WITH EACH MEAL, TOTAL OF 18 A DAY AND TOOK 3-4 W
     Route: 048
     Dates: start: 201904
  3. TRAMADOL [Concomitant]
     Active Substance: TRAMADOL
     Dosage: 1 DF, QD
  4. PREDNISONE [Concomitant]
     Active Substance: PREDNISONE
     Dosage: UNK UNK, PRN
  5. SINGULAIR [Concomitant]
     Active Substance: MONTELUKAST SODIUM
     Dosage: UNK
  6. LINZESS [Concomitant]
     Active Substance: LINACLOTIDE
     Dosage: 290 ??G, QD

REACTIONS (2)
  - Off label use [Unknown]
  - Overdose [Unknown]
